FAERS Safety Report 10221394 (Version 1)
Quarter: 2014Q1

REPORT INFORMATION
  Report Type: Spontaneous
  Country: US (occurrence: None)
  Receive Date: 20140306
  Receipt Date: 20140306
  Transmission Date: 20141002
  Serious: Yes (Other)
  Sender: FDA-Public Use
  Company Number: 163-21880-13062598

PATIENT
  Age: 55 Year
  Sex: Female

DRUGS (14)
  1. REVLIMID (LENALIDOMIDE) (CAPSULES) [Suspect]
     Indication: PLASMA CELL MYELOMA
     Route: 048
     Dates: start: 20130520
  2. FENTANYL (FENTANYL) (POULTICE OR PATCH) [Concomitant]
  3. LATANOPROST (LATANOPROST( (EAR DROPS) [Concomitant]
  4. IRON (IRON)  (UNKNOWN) [Concomitant]
  5. DILAUDID (HYDROMORPHONE HYDROCHLORIDE) (UNKNOWN) [Concomitant]
  6. COLACE (DOCUSATE SODIUM) (UNKNOWN) [Concomitant]
  7. VITAMIN D2 (ERGOCALCIFEROL) (UNKNOWN) [Concomitant]
  8. BONIVA (IBANDRONATE SODIUM) (UNKNOWN) [Concomitant]
  9. PANTOPRAZOLE (PANTOPRAZOLE) (UNKNOWN) [Concomitant]
  10. LACTULOSE (LACTULOSE) (UNKNOWN) [Concomitant]
  11. CALCIUM CARBONATE (CALCIUM CARBONATE) (UNKNOWN) [Concomitant]
  12. DEXAMETHASONE (DEXAMETHASONE) (UNKNOWN) [Concomitant]
  13. NEURONTIN (GABAPENTIN) (UNKNOWN) [Concomitant]
  14. VELCADE (BORTEZOMIB) (UNKNOWN) [Concomitant]

REACTIONS (1)
  - Fluid retention [None]
